FAERS Safety Report 11064306 (Version 1)
Quarter: 2015Q2

REPORT INFORMATION
  Report Type: Spontaneous
  Country: JP (occurrence: JP)
  Receive Date: 20150424
  Receipt Date: 20150424
  Transmission Date: 20150821
  Serious: Yes (Other)
  Sender: FDA-Public Use
  Company Number: JP-ASTRAZENECA-2015SE35247

PATIENT
  Age: 72 Year
  Sex: Male

DRUGS (13)
  1. BICALUTAMIDE. [Concomitant]
     Active Substance: BICALUTAMIDE
     Indication: PROSTATE CANCER
     Dosage: DOSE UNKNOWN
     Route: 065
     Dates: start: 20110901
  2. DENOSUMAB(GENETICAL RECOMBINATION) [Concomitant]
     Dosage: DOSE UNKNOWN
     Route: 065
     Dates: start: 20130521, end: 2013
  3. ZOLADEX [Suspect]
     Active Substance: GOSERELIN ACETATE
     Indication: PROSTATE CANCER
     Route: 058
     Dates: start: 20130716
  4. FLUTAMIDE. [Concomitant]
     Active Substance: FLUTAMIDE
     Dosage: DOSE UNKNOWN
     Route: 065
  5. DOCETAXEL. [Concomitant]
     Active Substance: DOCETAXEL
     Route: 065
     Dates: start: 20140605, end: 20140717
  6. ESTRAMUSTINE PHOSPHATE SODIUM HYDRATE [Concomitant]
     Active Substance: ESTRAMUSTINE PHOSPHATE SODIUM
     Dosage: DOSE UNKNOWN
     Route: 065
     Dates: start: 20130521, end: 2013
  7. DEGARELIX ACETATE [Concomitant]
     Active Substance: DEGARELIX ACETATE
     Dosage: DOSE UNKNOWN
     Route: 065
     Dates: start: 20130521, end: 2013
  8. DOCETAXEL. [Concomitant]
     Active Substance: DOCETAXEL
     Route: 065
     Dates: start: 20140508, end: 20140604
  9. ZOLADEX [Suspect]
     Active Substance: GOSERELIN ACETATE
     Indication: PROSTATE CANCER
     Route: 058
     Dates: start: 20110901
  10. ETHINYLESTRADIOL [Concomitant]
     Active Substance: ETHINYL ESTRADIOL
     Dosage: DOSE UNKNOWN
     Route: 065
     Dates: start: 20130716
  11. ENZALUTAMIDE [Concomitant]
     Active Substance: ENZALUTAMIDE
     Dosage: DOSE UNKNOWN
     Route: 065
     Dates: start: 20140814
  12. ZOLEDRONIC ACID HYDRATE [Concomitant]
     Active Substance: ZOLEDRONIC ACID
     Dosage: DOSE UNKNOWN
     Route: 065
     Dates: start: 20131025
  13. DOCETAXEL. [Concomitant]
     Active Substance: DOCETAXEL
     Route: 065
     Dates: start: 20140424, end: 20140507

REACTIONS (4)
  - Drug-induced liver injury [Unknown]
  - Adrenal neoplasm [Unknown]
  - Malignant neoplasm progression [Unknown]
  - Neutropenia [Unknown]
